FAERS Safety Report 20091145 (Version 2)
Quarter: 2021Q4

REPORT INFORMATION
  Report Type: Spontaneous
  Country: JP (occurrence: JP)
  Receive Date: 20211119
  Receipt Date: 20211126
  Transmission Date: 20220303
  Serious: Yes (Other)
  Sender: FDA-Public Use
  Company Number: JP-NOVARTISPH-NVSJ2021JP018553

PATIENT
  Age: 39 Year
  Sex: Female

DRUGS (1)
  1. NEORAL [Suspect]
     Active Substance: CYCLOSPORINE
     Indication: Aplastic anaemia
     Dosage: 400 MG
     Route: 048

REACTIONS (3)
  - Renal impairment [Unknown]
  - Immunosuppressant drug level decreased [Unknown]
  - Therapeutic product effect incomplete [Unknown]
